FAERS Safety Report 11781923 (Version 1)
Quarter: 2015Q4

REPORT INFORMATION
  Report Type: Spontaneous
  Country: US (occurrence: US)
  Receive Date: 20151126
  Receipt Date: 20151126
  Transmission Date: 20160305
  Serious: No
  Sender: FDA-Public Use
  Company Number: US-APOTEX-2014AP003877

PATIENT
  Sex: Female

DRUGS (2)
  1. FENTANYL TRANSDERMAL SYSTEM [Suspect]
     Active Substance: FENTANYL
     Indication: PRODUCT USED FOR UNKNOWN INDICATION
     Dosage: 3 DF/DAY
     Route: 062
     Dates: start: 20140613
  2. FENTANYL TRANSDERMAL SYSTEM [Suspect]
     Active Substance: FENTANYL
     Dosage: 4 DF/DAY
     Route: 062

REACTIONS (4)
  - Abnormal behaviour [Unknown]
  - Feeling jittery [Unknown]
  - Malaise [Recovered/Resolved]
  - Tremor [Unknown]
